FAERS Safety Report 23074852 (Version 2)
Quarter: 2023Q4

REPORT INFORMATION
  Report Type: Spontaneous
  Country: JP (occurrence: JP)
  Receive Date: 20231017
  Receipt Date: 20231103
  Transmission Date: 20240109
  Serious: Yes (Other)
  Sender: FDA-Public Use
  Company Number: JP-BAYER-2023A145103

PATIENT
  Age: 70 Year
  Sex: Male

DRUGS (1)
  1. IOPAMIRON [Suspect]
     Active Substance: IOPAMIDOL
     Indication: Computerised tomogram
     Dosage: UNK UNK, ONCE
     Dates: start: 20230907, end: 20230907

REACTIONS (4)
  - Injection site ulcer [Unknown]
  - Injection site scar [Unknown]
  - Infusion site extravasation [Unknown]
  - Peripheral swelling [Unknown]

NARRATIVE: CASE EVENT DATE: 20230907
